FAERS Safety Report 8416278-3 (Version None)
Quarter: 2012Q2

REPORT INFORMATION
  Report Type: 
  Country: None (occurrence: None)
  Receive Date: 20120606
  Receipt Date: 20120525
  Transmission Date: 20120825
  Serious: Yes (Other)
  Sender: FDA-Public Use
  Company Number: GB-ELI_LILLY_AND_COMPANY-GB201205009221

PATIENT
  Age: 13 Year
  Sex: Female

DRUGS (4)
  1. METHYLPHENIDATE HCL [Concomitant]
     Dosage: 27 MG, OTHER
     Route: 048
     Dates: start: 20110301, end: 20120405
  2. METHYLPHENIDATE HCL [Concomitant]
     Indication: ATTENTION DEFICIT/HYPERACTIVITY DISORDER
     Dosage: 27 MG, QD
     Route: 048
     Dates: start: 20091130, end: 20110301
  3. METHYLPHENIDATE HCL [Concomitant]
     Dosage: 36 MG, OTHER
     Route: 048
     Dates: start: 20110301, end: 20120405
  4. ATOMOXETINE HYDROCHLORIDE [Suspect]
     Dosage: 40 MG, QD
     Dates: start: 20110315, end: 20120220

REACTIONS (1)
  - PERIPHERAL COLDNESS [None]
